FAERS Safety Report 6745372-8 (Version None)
Quarter: 2010Q2

REPORT INFORMATION
  Report Type: 
  Country: None (occurrence: None)
  Receive Date: 20100528
  Receipt Date: 20100520
  Transmission Date: 20101027
  Serious: No
  Sender: FDA-Public Use
  Company Number: US-BIOGENIDEC-2010BI016646

PATIENT
  Age: 44 Year
  Sex: Female

DRUGS (2)
  1. AVONEX [Suspect]
     Indication: MULTIPLE SCLEROSIS
     Route: 030
     Dates: start: 20050730
  2. AMANTADINE HCL [Concomitant]
     Indication: AMNESIA

REACTIONS (3)
  - AMNESIA [None]
  - AXILLARY MASS [None]
  - INJECTION SITE ERYTHEMA [None]
